FAERS Safety Report 4773273-3 (Version None)
Quarter: 2005Q3

REPORT INFORMATION
  Report Type: 
  Country: None (occurrence: None)
  Receive Date: 20050920
  Receipt Date: 20050818
  Transmission Date: 20060218
  Serious: Yes (Hospitalization)
  Sender: FDA-Public Use
  Company Number: US-BOEHRINGER INGELHEIM PHARMACEUTICALS, INC.-2005-BP-14502BP

PATIENT
  Sex: Female

DRUGS (13)
  1. MOBIC [Suspect]
     Dates: start: 20050428, end: 20050809
  2. MEVALOTIN [Suspect]
     Indication: HYPERLIPIDAEMIA
     Route: 048
     Dates: start: 19940119, end: 20050809
  3. PAEONIAE RADIX / LICORICE EXTRACT [Suspect]
     Route: 048
     Dates: start: 20050610, end: 20050809
  4. SEPAZON [Concomitant]
     Dates: start: 19951130, end: 20050809
  5. AMOXAN [Concomitant]
     Dates: start: 19951130, end: 20050809
  6. EVISTA [Concomitant]
     Dates: start: 20050401, end: 20050809
  7. EPADEL [Concomitant]
     Dates: start: 19961227, end: 20050809
  8. PURSENNID [Concomitant]
     Dates: start: 20020507, end: 20050809
  9. ALOSENN [Concomitant]
     Dates: start: 20020517, end: 20050809
  10. MAGNESIUM OXIDE [Concomitant]
     Dates: start: 20040611, end: 20050809
  11. PRORENAL [Concomitant]
     Dates: start: 20041028, end: 20050809
  12. DICLOFENAC SODIUM [Concomitant]
     Dates: start: 20050204, end: 20050809
  13. MOBIC [Concomitant]
     Dates: start: 20050428, end: 20050809

REACTIONS (5)
  - BLOOD CREATINE PHOSPHOKINASE INCREASED [None]
  - MOVEMENT DISORDER [None]
  - MUSCULAR WEAKNESS [None]
  - MYOGLOBIN BLOOD INCREASED [None]
  - RHABDOMYOLYSIS [None]
